FAERS Safety Report 9375176 (Version 1)
Quarter: 2013Q2

REPORT INFORMATION
  Report Type: Spontaneous
  Country: US (occurrence: US)
  Receive Date: 20130628
  Receipt Date: 20130628
  Transmission Date: 20140414
  Serious: Yes (Other)
  Sender: FDA-Public Use
  Company Number: US-PFIZER INC-2013190357

PATIENT
  Age: 52 Year
  Sex: Female
  Weight: 68.02 kg

DRUGS (3)
  1. PREMARIN [Suspect]
     Indication: VULVOVAGINAL DRYNESS
     Dosage: UNK, 2X/WEEK
     Route: 067
     Dates: start: 20130620
  2. PREMARIN [Suspect]
     Indication: VULVOVAGINAL DISCOMFORT
  3. PREMARIN [Suspect]
     Indication: BLOOD OESTROGEN DECREASED

REACTIONS (1)
  - Vaginal haemorrhage [Recovered/Resolved]
